FAERS Safety Report 7482677-X (Version None)
Quarter: 2011Q2

REPORT INFORMATION
  Report Type: 
  Country: None (occurrence: None)
  Receive Date: 20110516
  Receipt Date: 20110509
  Transmission Date: 20111010
  Serious: Yes (Death, Other)
  Sender: FDA-Public Use
  Company Number: US-TEVA-280879USA

PATIENT
  Sex: Female

DRUGS (1)
  1. PROPOXYPHENE NAPSYLATE AND ACETAMINOPHEN [Suspect]

REACTIONS (2)
  - SUDDEN DEATH [None]
  - MYOCARDIAL INFARCTION [None]
